FAERS Safety Report 4931641-0 (Version None)
Quarter: 2006Q1

REPORT INFORMATION
  Report Type: 
  Country: None (occurrence: None)
  Receive Date: 20060303
  Receipt Date: 20051102
  Transmission Date: 20060701
  Serious: No
  Sender: FDA-Public Use
  Company Number: US-BRISTOL-MYERS SQUIBB COMPANY-13169495

PATIENT
  Age: 59 Year
  Sex: Female

DRUGS (5)
  1. ERBITUX [Suspect]
     Indication: COLON CANCER METASTATIC
     Dosage: THERAPY START DATE 07-SEP-05 EVERY 2 WEEKS.
     Route: 042
     Dates: start: 20050901, end: 20050901
  2. FOLINIC ACID [Concomitant]
  3. FLUOROURACIL [Concomitant]
  4. IRINOTECAN HCL [Concomitant]
  5. VITAMINS [Concomitant]

REACTIONS (1)
  - MUCOSAL INFLAMMATION [None]
